FAERS Safety Report 8285901-9 (Version None)
Quarter: 2012Q2

REPORT INFORMATION
  Report Type: 
  Country: None (occurrence: None)
  Receive Date: 20120414
  Receipt Date: 20120406
  Transmission Date: 20120825
  Serious: No
  Sender: FDA-Public Use
  Company Number: US-BAYER-2012-035205

PATIENT

DRUGS (7)
  1. ASPIRIN [Suspect]
  2. ALEVE (CAPLET) [Suspect]
  3. EXCEDRIN [CAFFEINE,PARACETAMOL] [Concomitant]
  4. IBUPROFEN [Concomitant]
  5. ACETAMINOPHEN [Concomitant]
  6. VICODIN [Concomitant]
  7. AMOXICILLIN [Concomitant]

REACTIONS (1)
  - PAIN [None]
